FAERS Safety Report 5506687-4 (Version None)
Quarter: 2007Q4

REPORT INFORMATION
  Report Type: 
  Country: None (occurrence: None)
  Receive Date: 20071105
  Receipt Date: 20071026
  Transmission Date: 20080405
  Serious: Yes (Other)
  Sender: FDA-Public Use
  Company Number: GB-ASTRAZENECA-2007GB02187

PATIENT
  Age: 73 Year
  Sex: Female

DRUGS (3)
  1. LIDOCAINE [Suspect]
     Indication: BURSITIS
     Route: 065
     Dates: start: 20070918, end: 20070918
  2. KENALOG [Suspect]
     Indication: BURSITIS
     Dates: start: 20070918, end: 20070918
  3. IBUPROFEN [Concomitant]
     Indication: BURSITIS
     Route: 048
     Dates: start: 20070723

REACTIONS (3)
  - DYSPNOEA [None]
  - ERYTHEMA [None]
  - RASH GENERALISED [None]
